FAERS Safety Report 5341807-6 (Version None)
Quarter: 2007Q2

REPORT INFORMATION
  Report Type: 
  Country: None (occurrence: None)
  Receive Date: 20070601
  Receipt Date: 20070525
  Transmission Date: 20071010
  Serious: Yes (Other)
  Sender: FDA-Public Use
  Company Number: US-BAYER-200616339BWH

PATIENT
  Age: 85 Year
  Sex: Female

DRUGS (10)
  1. NEXAVAR [Suspect]
     Indication: RENAL CELL CARCINOMA STAGE IV
     Dosage: TOTAL DAILY DOSE: 800 MG  UNIT DOSE: 200 MG
     Route: 048
     Dates: start: 20061023, end: 20061101
  2. NEXAVAR [Suspect]
     Dosage: TOTAL DAILY DOSE: 200 MG  UNIT DOSE: 200 MG
     Route: 048
     Dates: start: 20061127, end: 20061213
  3. NEXAVAR [Suspect]
     Dosage: TOTAL DAILY DOSE: 200 MG  UNIT DOSE: 200 MG
     Route: 048
     Dates: start: 20061214, end: 20061222
  4. METOPROLOL SUCCINATE [Concomitant]
     Dates: start: 20041201
  5. LEVOXYL [Concomitant]
     Dates: start: 20041201
  6. LASIX [Concomitant]
     Dates: start: 20041201
  7. NORVASC [Concomitant]
     Dates: start: 20041201
  8. COZAAR [Concomitant]
     Dates: start: 20041201
  9. COUMADIN [Concomitant]
     Dates: start: 20041201
  10. LANOXIN [Concomitant]
     Dates: start: 20041201

REACTIONS (9)
  - CHEST DISCOMFORT [None]
  - CHEST PAIN [None]
  - DYSPNOEA [None]
  - HEART RATE INCREASED [None]
  - HEART RATE IRREGULAR [None]
  - NEURALGIA [None]
  - PAIN OF SKIN [None]
  - PARAESTHESIA [None]
  - VISION BLURRED [None]
